FAERS Safety Report 7542622-5 (Version None)
Quarter: 2011Q2

REPORT INFORMATION
  Report Type: 
  Country: None (occurrence: None)
  Receive Date: 20110613
  Receipt Date: 20110606
  Transmission Date: 20111010
  Serious: Yes (Disabling, Other)
  Sender: FDA-Public Use
  Company Number: PHHY2011GB12175

PATIENT
  Age: 72 Year
  Sex: Male
  Weight: 91.8 kg

DRUGS (7)
  1. BISOPROLOL FUMARATE [Concomitant]
     Indication: HYPERTENSION
     Dosage: 10 MG, QD
     Route: 048
  2. FINASTERIDE [Concomitant]
     Dosage: 5 MG, QD
     Route: 048
  3. ALFUZOSIN HCL [Concomitant]
     Indication: PROSTATIC DISORDER
     Dosage: 10 MG, UNK
  4. FELODIPINE [Suspect]
     Dosage: 5 MG, QD
     Route: 048
     Dates: start: 20101219, end: 20110201
  5. AMLODIPINE [Suspect]
     Indication: HYPERTENSION
     Dosage: 10 MG, QD
     Route: 048
  6. ATORVASTATIN [Concomitant]
     Indication: HYPERCHOLESTEROLAEMIA
     Dosage: 10 MG, UNK
     Route: 048
  7. LISINOPRIL [Concomitant]
     Indication: HYPERTENSION
     Dosage: 20 MG, BID
     Route: 048

REACTIONS (3)
  - DRUG DISPENSING ERROR [None]
  - MUSCULOSKELETAL PAIN [None]
  - MYALGIA [None]
